FAERS Safety Report 21290379 (Version 3)
Quarter: 2024Q2

REPORT INFORMATION
  Report Type: Spontaneous
  Country: JP (occurrence: JP)
  Receive Date: 20220902
  Receipt Date: 20240427
  Transmission Date: 20240715
  Serious: Yes (Death, Other)
  Sender: FDA-Public Use
  Company Number: JP-ONO-2022JP023877

PATIENT
  Age: 82 Year
  Sex: Female

DRUGS (4)
  1. KYPROLIS [Suspect]
     Active Substance: CARFILZOMIB
     Indication: Plasma cell myeloma
     Dosage: UNK
     Route: 041
  2. KYPROLIS [Suspect]
     Active Substance: CARFILZOMIB
     Dosage: UNK
     Route: 041
  3. LENALIDOMIDE [Concomitant]
     Active Substance: LENALIDOMIDE
     Indication: Plasma cell myeloma
     Dosage: UNK
     Route: 065
  4. DEXAMETHASONE [Concomitant]
     Active Substance: DEXAMETHASONE
     Indication: Plasma cell myeloma
     Dosage: UNK
     Route: 065

REACTIONS (2)
  - Pneumonia [Fatal]
  - Underdose [Unknown]
